FAERS Safety Report 6863486-9 (Version None)
Quarter: 2010Q3

REPORT INFORMATION
  Report Type: 
  Country: None (occurrence: None)
  Receive Date: 20100721
  Receipt Date: 20100707
  Transmission Date: 20110219
  Serious: Yes (Other)
  Sender: FDA-Public Use
  Company Number: FR-PFIZER INC-2010078313

PATIENT
  Age: 63 Year
  Sex: Female
  Weight: 58.957 kg

DRUGS (4)
  1. TAHOR [Suspect]
     Indication: HYPERCHOLESTEROLAEMIA
     Dosage: 20 MG, 1X/DAY
     Route: 048
     Dates: start: 20070702
  2. LEVOTHYROXINE SODIUM [Concomitant]
     Indication: THYROID DISORDER
     Dosage: 100 UNK, 1X/DAY
     Dates: start: 19900101
  3. UVEDOSE [Concomitant]
     Indication: OSTEOPENIA
  4. DAFALGAN [Concomitant]

REACTIONS (4)
  - MUSCLE RUPTURE [None]
  - MYALGIA [None]
  - TENDON RUPTURE [None]
  - TENDONITIS [None]
